FAERS Safety Report 8281763-4 (Version None)
Quarter: 2012Q2

REPORT INFORMATION
  Report Type: 
  Country: None (occurrence: None)
  Receive Date: 20120413
  Receipt Date: 20120405
  Transmission Date: 20120825
  Serious: Yes (Other)
  Sender: FDA-Public Use
  Company Number: US-US-EMD SERONO, INC.-7120692

PATIENT
  Sex: Female
  Weight: 64 kg

DRUGS (3)
  1. FOSAMAX [Concomitant]
     Indication: OSTEOPOROSIS
  2. XANAX [Concomitant]
     Indication: ANXIOLYTIC THERAPY
  3. REBIF [Suspect]
     Indication: MULTIPLE SCLEROSIS
     Route: 058
     Dates: start: 20070904

REACTIONS (9)
  - NEPHROLITHIASIS [None]
  - CONDITION AGGRAVATED [None]
  - RESTLESS LEGS SYNDROME [None]
  - INJECTION SITE PAIN [None]
  - HEPATIC MASS [None]
  - HEPATIC CYST [None]
  - INSOMNIA [None]
  - INJECTION SITE ERYTHEMA [None]
  - RENAL CYST [None]
